FAERS Safety Report 19783271 (Version 1)
Quarter: 2021Q3

REPORT INFORMATION
  Report Type: Other
  Country: NL (occurrence: NL)
  Receive Date: 20210902
  Receipt Date: 20210902
  Transmission Date: 20211014
  Serious: Yes (Hospitalization)
  Sender: FDA-Public Use
  Company Number: NL-ALSI-2021000254

PATIENT
  Age: 24 Year
  Sex: Male

DRUGS (1)
  1. NITROUS OXIDE. [Suspect]
     Active Substance: NITROUS OXIDE
     Indication: DRUG ABUSE
     Route: 055

REACTIONS (5)
  - Vitamin B12 deficiency [Recovered/Resolved]
  - Papilloedema [Recovered/Resolved]
  - Neuropathy peripheral [Unknown]
  - Cerebral venous sinus thrombosis [Unknown]
  - Generalised tonic-clonic seizure [Recovered/Resolved]
